FAERS Safety Report 8121740-7 (Version None)
Quarter: 2012Q1

REPORT INFORMATION
  Report Type: 
  Country: None (occurrence: None)
  Receive Date: 20120207
  Receipt Date: 20120207
  Transmission Date: 20120608
  Serious: Yes (Other)
  Sender: FDA-Public Use
  Company Number: None

PATIENT
  Age: 78 Year
  Sex: Female
  Weight: 53.5244 kg

DRUGS (2)
  1. PLUGS INTO EYE DUCTS [Concomitant]
  2. VESICARE [Suspect]
     Indication: HYPERTONIC BLADDER
     Dosage: 5MG ONCE DAILY ORAL
     Route: 048
     Dates: start: 20111205, end: 20111222

REACTIONS (2)
  - VISION BLURRED [None]
  - DRY EYE [None]
